FAERS Safety Report 25720135 (Version 2)
Quarter: 2025Q4

REPORT INFORMATION
  Report Type: Report from Study
  Country: US (occurrence: US)
  Receive Date: 20250825
  Receipt Date: 20251117
  Transmission Date: 20260117
  Serious: Yes (Other)
  Sender: AMGEN
  Company Number: US-AMGEN-USASL2024227622

PATIENT
  Age: 68 Year
  Sex: Female
  Weight: 65.669 kg

DRUGS (15)
  1. IMDELLTRA [Suspect]
     Active Substance: TARLATAMAB-DLLE
     Indication: Product used for unknown indication
     Dosage: UNK, 10 MILLIGRAM 1 VIAL (ACTIVE)
     Route: 040
     Dates: end: 20241113
  2. IMDELLTRA [Suspect]
     Active Substance: TARLATAMAB-DLLE
     Dosage: UNK, 10 MILLIGRAM 1 VIAL (ACTIVE)
     Route: 040
     Dates: start: 20241204
  3. IMDELLTRA [Suspect]
     Active Substance: TARLATAMAB-DLLE
     Dosage: UNK, 10 MILLIGRAM 1 VIAL (ACTIVE)
     Route: 040
     Dates: start: 20241219
  4. IMDELLTRA [Suspect]
     Active Substance: TARLATAMAB-DLLE
     Dosage: 10 MILLIGRAM, 1 VIAL
     Route: 040
     Dates: start: 202508
  5. IMDELLTRA [Suspect]
     Active Substance: TARLATAMAB-DLLE
     Dosage: 10 MILLIGRAM, 1 VIAL
     Route: 040
     Dates: start: 20251107
  6. DECADRON [Concomitant]
     Active Substance: DEXAMETHASONE
     Dosage: 8 MILLIGRAM, INFUSION
  7. DECADRON [Concomitant]
     Active Substance: DEXAMETHASONE
     Dosage: 8 MILLIGRAM, INFUSION
     Dates: start: 20250818
  8. DECADRON [Concomitant]
     Active Substance: DEXAMETHASONE
     Dosage: 8 MILLIGRAM, INFUSION
     Dates: start: 20251107
  9. SODIUM CHLORIDE [Concomitant]
     Active Substance: SODIUM CHLORIDE
     Dosage: 500 MILLILITER
  10. SODIUM CHLORIDE [Concomitant]
     Active Substance: SODIUM CHLORIDE
     Dosage: 1000 MILLILITER
  11. SODIUM CHLORIDE [Concomitant]
     Active Substance: SODIUM CHLORIDE
     Dosage: UNK
     Dates: start: 20250818
  12. SODIUM CHLORIDE [Concomitant]
     Active Substance: SODIUM CHLORIDE
     Dosage: 500 MILLILITER
     Dates: start: 20251107
  13. HEPARIN [Concomitant]
     Active Substance: HEPARIN SODIUM
     Dosage: 250 UNIT
  14. ZOMETA [Concomitant]
     Active Substance: ZOLEDRONIC ACID
     Dosage: 3.50 MILLIGRAM (WASTE DOSE: 0.50 MG)
     Dates: start: 20250818
  15. ZOMETA [Concomitant]
     Active Substance: ZOLEDRONIC ACID
     Dosage: 3.50 MILLIGRAM (WASTE DOSE: 0.50 MG)
     Dates: start: 20251107

REACTIONS (7)
  - Confusional state [Unknown]
  - Neutropenia [Unknown]
  - Decreased appetite [Unknown]
  - Infusion site haemorrhage [Unknown]
  - Blood pressure increased [Unknown]
  - Abnormal loss of weight [Unknown]
  - Dyscalculia [Unknown]

NARRATIVE: CASE EVENT DATE: 20241113
